FAERS Safety Report 19114708 (Version 1)
Quarter: 2021Q2

REPORT INFORMATION
  Report Type: Spontaneous
  Country: US (occurrence: US)
  Receive Date: 20210409
  Receipt Date: 20210409
  Transmission Date: 20210717
  Serious: No
  Sender: FDA-Public Use
  Company Number: US-PFIZER INC-2021273960

PATIENT
  Age: 62 Year
  Sex: Female
  Weight: 49.07 kg

DRUGS (2)
  1. METHOTREXATE SODIUM. [Suspect]
     Active Substance: METHOTREXATE SODIUM
     Dosage: UNK
  2. AMOXICILLIN. [Interacting]
     Active Substance: AMOXICILLIN
     Dosage: UNK

REACTIONS (1)
  - Drug interaction [Unknown]
